FAERS Safety Report 4592561-7 (Version None)
Quarter: 2005Q1

REPORT INFORMATION
  Report Type: 
  Country: None (occurrence: None)
  Receive Date: 20050222
  Receipt Date: 20050201
  Transmission Date: 20050727
  Serious: Yes (Other)
  Sender: FDA-Public Use
  Company Number: 2004SE04443

PATIENT
  Age: 30 Year
  Sex: Male

DRUGS (4)
  1. SEROQUEL [Suspect]
     Indication: AFFECTIVE DISORDER
     Dosage: 600 MG DAILY
  2. SEROQUEL [Suspect]
     Indication: AFFECTIVE DISORDER
     Dosage: 400 MG DAILY
  3. VALPROIC ACID [Concomitant]
  4. RIVOTRIL [Concomitant]

REACTIONS (1)
  - NEUTROPENIA [None]
